FAERS Safety Report 6166866-2 (Version None)
Quarter: 2009Q2

REPORT INFORMATION
  Report Type: 
  Country: None (occurrence: None)
  Receive Date: 20090424
  Receipt Date: 20090417
  Transmission Date: 20091009
  Serious: Yes (Hospitalization)
  Sender: FDA-Public Use
  Company Number: A0780182A

PATIENT
  Age: 57 Year
  Sex: Female
  Weight: 107.7 kg

DRUGS (13)
  1. AVANDIA [Suspect]
     Indication: DIABETES MELLITUS
     Dosage: 2MG PER DAY
     Route: 048
     Dates: start: 20050101, end: 20070901
  2. GLUCOTROL XL [Concomitant]
  3. NITROGLYCERIN [Concomitant]
  4. ASCORBIC ACID [Concomitant]
  5. LEVOTHROID [Concomitant]
  6. COENZYME Q10 [Concomitant]
  7. ALLOPURINOL [Concomitant]
  8. FOLIC ACID [Concomitant]
  9. GABAPENTIN [Concomitant]
  10. VITAMIN D [Concomitant]
  11. PLAVIX [Concomitant]
  12. MULTI-VITAMIN [Concomitant]
  13. CHROMIUM PICOLINATE [Concomitant]

REACTIONS (2)
  - CARDIAC DISORDER [None]
  - CARDIAC FAILURE CONGESTIVE [None]
